FAERS Safety Report 4275552-5 (Version None)
Quarter: 2004Q1

REPORT INFORMATION
  Report Type: 
  Country: None (occurrence: None)
  Receive Date: 20040116
  Receipt Date: 20040106
  Transmission Date: 20041129
  Serious: Yes (Hospitalization, Other)
  Sender: FDA-Public Use
  Company Number: US038385

PATIENT
  Age: 65 Year
  Sex: Female
  Weight: 64 kg

DRUGS (9)
  1. EPOGEN [Suspect]
     Indication: RENAL FAILURE CHRONIC
     Dosage: 5000 U, WEEKLY, SC
     Route: 058
     Dates: start: 20020820, end: 20030720
  2. PHENYTOIN SODIUM [Suspect]
     Dosage: 400 MG, DAILY
     Dates: start: 20030201, end: 20030522
  3. AMLODIPINE BESYLATE [Concomitant]
  4. METOPROLOL [Concomitant]
  5. FUROSEMIDE [Concomitant]
  6. CALCITRIOL [Concomitant]
  7. FERROUS SULFATE TAB [Concomitant]
  8. NPH INSULIN [Concomitant]
  9. PHOSLO [Concomitant]

REACTIONS (14)
  - ANAEMIA [None]
  - ANTI-ERYTHROPOIETIN ANTIBODY POSITIVE [None]
  - APLASIA PURE RED CELL [None]
  - BACTERAEMIA [None]
  - BLOOD ERYTHROPOIETIN DECREASED [None]
  - BLOOD PARATHYROID HORMONE INCREASED [None]
  - BONE MARROW DEPRESSION [None]
  - HAEMODIALYSIS [None]
  - MENINGIOMA [None]
  - PLATELET COUNT DECREASED [None]
  - SERUM FERRITIN INCREASED [None]
  - STAPHYLOCOCCAL INFECTION [None]
  - THERAPEUTIC RESPONSE DECREASED [None]
  - VITAMIN B12 INCREASED [None]
